FAERS Safety Report 8791100 (Version 1)
Quarter: 2012Q4

REPORT INFORMATION
  Report Type: Spontaneous
  Country: US (occurrence: None)
  Receive Date: 20120907
  Receipt Date: 20120907
  Transmission Date: 20130627
  Serious: Yes (Hospitalization)
  Sender: FDA-Public Use
  Company Number: JPI-P-024790

PATIENT
  Age: 64 Year
  Sex: Female

DRUGS (1)
  1. XYREM [Suspect]
     Indication: APNOEA
     Route: 048
     Dates: start: 20080115

REACTIONS (7)
  - Fall [None]
  - Hip fracture [None]
  - Feeling cold [None]
  - Abnormal dreams [None]
  - Headache [None]
  - Fatigue [None]
  - Dry eye [None]
